FAERS Safety Report 4861037-1 (Version None)
Quarter: 2005Q4

REPORT INFORMATION
  Report Type: 
  Country: None (occurrence: None)
  Receive Date: 20051216
  Receipt Date: 20051206
  Transmission Date: 20060501
  Serious: Yes (Death, Life-Threatening)
  Sender: FDA-Public Use
  Company Number: HQWYE893607DEC05

PATIENT
  Age: 43 Year
  Sex: Male

DRUGS (2)
  1. ZOSYN [Suspect]
     Dosage: UNKNOWN, INTRAVENOUS
     Route: 042
  2. VANCOMYCIN [Concomitant]

REACTIONS (16)
  - BIOPSY BONE MARROW ABNORMAL [None]
  - BLOOD CULTURE POSITIVE [None]
  - CATHETER RELATED INFECTION [None]
  - CULTURE URINE POSITIVE [None]
  - HAEMOGLOBIN DECREASED [None]
  - HYPOTENSION [None]
  - LUNG NEOPLASM [None]
  - MULTI-ORGAN FAILURE [None]
  - NEUTROPHIL PERCENTAGE DECREASED [None]
  - PLATELET COUNT DECREASED [None]
  - RASH ERYTHEMATOUS [None]
  - RASH PAPULAR [None]
  - RESPIRATORY FAILURE [None]
  - SEPSIS [None]
  - TRICHOSPORON INFECTION [None]
  - WHITE BLOOD CELL COUNT DECREASED [None]
